FAERS Safety Report 4787169-4 (Version None)
Quarter: 2005Q4

REPORT INFORMATION
  Report Type: 
  Country: None (occurrence: None)
  Receive Date: 20051004
  Receipt Date: 20050927
  Transmission Date: 20060501
  Serious: Yes (Hospitalization, Disabling, Other)
  Sender: FDA-Public Use
  Company Number: US-MERCK-0509USA04696

PATIENT
  Sex: Female
  Weight: 132 kg

DRUGS (3)
  1. VIOXX [Suspect]
     Indication: TENDONITIS
     Route: 048
     Dates: end: 20040901
  2. INDERIDE TABLETS [Concomitant]
     Route: 065
  3. INSULIN [Concomitant]
     Route: 065

REACTIONS (8)
  - BACK PAIN [None]
  - BURSITIS [None]
  - CARDIAC DISORDER [None]
  - CEREBROVASCULAR ACCIDENT [None]
  - DEPRESSION [None]
  - PARKINSON'S DISEASE [None]
  - TENDONITIS [None]
  - UTERINE DISORDER [None]
